FAERS Safety Report 5564248-5 (Version None)
Quarter: 2007Q4

REPORT INFORMATION
  Report Type: 
  Country: None (occurrence: None)
  Receive Date: 20071217
  Receipt Date: 20071210
  Transmission Date: 20080405
  Serious: Yes (Hospitalization)
  Sender: FDA-Public Use
  Company Number: US-GILEAD-2007-0012782

PATIENT
  Sex: Female
  Weight: 133.84 kg

DRUGS (28)
  1. AMBRISENTAN [Suspect]
     Indication: PULMONARY HYPERTENSION
     Route: 048
     Dates: start: 20060112
  2. AMBRISENTAN [Suspect]
     Route: 048
     Dates: start: 20051021
  3. ALDACTONE [Concomitant]
     Dates: start: 20060819
  4. TOPROL-XL [Concomitant]
     Dates: start: 20070409
  5. COUMADIN [Concomitant]
     Dates: start: 20070608
  6. COUMADIN [Concomitant]
     Dates: start: 20070608
  7. METOLAZONE [Concomitant]
     Dates: start: 20070118
  8. COZAAR [Concomitant]
     Dates: start: 20060516
  9. LASIX [Concomitant]
     Dates: start: 20070118
  10. OXYGEN [Concomitant]
     Route: 045
     Dates: start: 20070504
  11. SINGULAIR [Concomitant]
     Dates: start: 20060818
  12. ALBUTEROL [Concomitant]
     Dates: start: 20060131
  13. POTASSIUM CHLORIDE [Concomitant]
     Dates: start: 20070118
  14. POTASSIUM CHLORIDE [Concomitant]
     Dates: start: 20060426
  15. XANAX [Concomitant]
     Dates: start: 20051001
  16. SYNTHROID [Concomitant]
     Dates: start: 20060927
  17. EFFEXOR [Concomitant]
     Dates: start: 20061006
  18. EFFEXOR [Concomitant]
     Dates: start: 20051110
  19. VALTREX [Concomitant]
     Dates: start: 20060123
  20. NEXIUM [Concomitant]
     Dates: start: 20051014
  21. PERCOCET [Concomitant]
     Dates: start: 20061018
  22. TRAZODONE HCL [Concomitant]
     Dates: start: 20070105
  23. METHOCARBAMOL [Concomitant]
     Dates: start: 20061021
  24. NASONEX [Concomitant]
     Route: 045
     Dates: start: 20060818
  25. MUCINEX [Concomitant]
     Dates: start: 20060818
  26. CLARITIN [Concomitant]
     Dates: start: 20051001
  27. DEPO-PROVERA [Concomitant]
     Route: 030
     Dates: start: 20030101
  28. ORTHO TRI-CYCLEN [Concomitant]
     Dates: start: 19950101

REACTIONS (1)
  - UPPER RESPIRATORY TRACT INFECTION [None]
